FAERS Safety Report 22293472 (Version 1)
Quarter: 2023Q2

REPORT INFORMATION
  Report Type: Spontaneous
  Country: PR (occurrence: PR)
  Receive Date: 20230508
  Receipt Date: 20230508
  Transmission Date: 20230722
  Serious: No
  Sender: FDA-Public Use
  Company Number: PR-BRISTOL-MYERS SQUIBB COMPANY-2023-064561

PATIENT
  Age: 64 Year
  Sex: Female
  Weight: 55.33 kg

DRUGS (4)
  1. REVLIMID [Suspect]
     Active Substance: LENALIDOMIDE
     Indication: Plasma cell myeloma
     Dosage: FREQUENCY:21 DAYS ON, 7 DAYS OFF
     Route: 048
     Dates: start: 20220511
  2. REVLIMID [Suspect]
     Active Substance: LENALIDOMIDE
     Dates: start: 202206
  3. DEXAMETHASONE [Concomitant]
     Active Substance: DEXAMETHASONE
     Indication: Product used for unknown indication
     Route: 048
  4. KYPROLIS [Concomitant]
     Active Substance: CARFILZOMIB
     Indication: Product used for unknown indication
     Dosage: INTRAVENOUS SOLUTION
     Route: 048

REACTIONS (1)
  - Tachycardia [Recovered/Resolved]

NARRATIVE: CASE EVENT DATE: 20220501
